FAERS Safety Report 25348916 (Version 1)
Quarter: 2025Q2

REPORT INFORMATION
  Report Type: Spontaneous
  Country: CN (occurrence: CN)
  Receive Date: 20250522
  Receipt Date: 20250522
  Transmission Date: 20250716
  Serious: Yes (Other)
  Sender: BAXTER
  Company Number: None

PATIENT
  Age: 47 Year
  Sex: Female
  Weight: 55 kg

DRUGS (5)
  1. CYCLOPHOSPHAMIDE [Suspect]
     Active Substance: CYCLOPHOSPHAMIDE
     Indication: Breast cancer female
     Dosage: 1 G, QD
     Route: 041
     Dates: start: 20250410, end: 20250410
  2. SODIUM CHLORIDE [Suspect]
     Active Substance: SODIUM CHLORIDE
     Dosage: 0.9 % 500 ML, QD, INJECTION, WITH CYCLOPHOSPHAMIDE
     Route: 041
     Dates: start: 20250410, end: 20250410
  3. SODIUM CHLORIDE [Suspect]
     Active Substance: SODIUM CHLORIDE
     Dosage: 0.9 % 500 ML, QD, INJECTION, ONCE WITH EPIRUBICIN HYDROCHLORIDE
     Route: 041
     Dates: start: 20250410, end: 20250410
  4. EPIRUBICIN HYDROCHLORIDE [Suspect]
     Active Substance: EPIRUBICIN HYDROCHLORIDE
     Indication: Breast cancer female
     Dosage: 140 MG, QD
     Route: 041
     Dates: start: 20250410, end: 20250410
  5. GRANULOCYTE COLONY-STIMULATING FACTOR NOS [Concomitant]
     Active Substance: GRANULOCYTE COLONY-STIMULATING FACTOR NOS
     Route: 058
     Dates: start: 202504

REACTIONS (1)
  - White blood cell count decreased [Recovering/Resolving]

NARRATIVE: CASE EVENT DATE: 20250413
